FAERS Safety Report 16662586 (Version 2)
Quarter: 2020Q1

REPORT INFORMATION
  Report Type: Report from Study
  Country: US (occurrence: US)
  Receive Date: 20190802
  Receipt Date: 20200129
  Transmission Date: 20200409
  Serious: No
  Sender: FDA-Public Use
  Company Number: US-EXELIXIS-CABO-18018000

PATIENT
  Age: 83 Year
  Sex: Male

DRUGS (20)
  1. COENZYME Q10 [Concomitant]
     Active Substance: UBIDECARENONE
  2. VIIBRYD [Concomitant]
     Active Substance: VILAZODONE HYDROCHLORIDE
  3. CABOMETYX [Suspect]
     Active Substance: CABOZANTINIB S-MALATE
     Indication: RENAL CANCER
     Dosage: 40 MG, QD
     Route: 048
     Dates: start: 20181205, end: 201901
  4. KRILL OIL [Concomitant]
     Active Substance: DIETARY SUPPLEMENT\KRILL OIL
  5. ADVAIR HFA [Concomitant]
     Active Substance: FLUTICASONE PROPIONATE\SALMETEROL XINAFOATE
  6. LOSARTAN POTASSIUM. [Concomitant]
     Active Substance: LOSARTAN POTASSIUM
  7. VITAMIN C [Concomitant]
     Active Substance: ASCORBIC ACID
  8. DOXAZOSIN MESYLATE. [Concomitant]
     Active Substance: DOXAZOSIN MESYLATE
  9. ATORVASTATIN CALCIUM. [Concomitant]
     Active Substance: ATORVASTATIN CALCIUM
  10. HYOSCYAMINE SULFATE. [Concomitant]
     Active Substance: HYOSCYAMINE SULFATE
  11. KEYTRUDA [Concomitant]
     Active Substance: PEMBROLIZUMAB
  12. CABOMETYX [Suspect]
     Active Substance: CABOZANTINIB S-MALATE
     Dosage: 20 MG, QD
     Route: 048
  13. CALCIUM [Concomitant]
     Active Substance: CALCIUM
  14. VITAMIN D3 [Concomitant]
     Active Substance: CHOLECALCIFEROL
  15. FINASTERIDE. [Concomitant]
     Active Substance: FINASTERIDE
  16. MULTIVITAMINS, COMBINATIONS [Concomitant]
     Active Substance: VITAMINS
  17. TURMERIC CURCUMIN [Concomitant]
     Active Substance: HERBALS\TURMERIC
  18. PROBIOTIC [Concomitant]
     Active Substance: PROBIOTICS NOS
  19. AMLODIPINE BESYLATE. [Concomitant]
     Active Substance: AMLODIPINE BESYLATE
  20. XARELTO [Concomitant]
     Active Substance: RIVAROXABAN

REACTIONS (6)
  - Skin ulcer [Unknown]
  - Skin disorder [Unknown]
  - Blister [Unknown]
  - Drug ineffective [Unknown]
  - Sluggishness [Unknown]
  - Fatigue [Unknown]

NARRATIVE: CASE EVENT DATE: 201812
